FAERS Safety Report 5978579-8 (Version None)
Quarter: 2008Q4

REPORT INFORMATION
  Report Type: 
  Country: None (occurrence: None)
  Receive Date: 20081204
  Receipt Date: 20081202
  Transmission Date: 20090506
  Serious: Yes (Other)
  Sender: FDA-Public Use
  Company Number: A0759164A

PATIENT
  Age: 52 Year
  Sex: Male

DRUGS (5)
  1. ZYBAN [Suspect]
     Dosage: 150MG TWICE PER DAY
     Route: 048
  2. COGENTIN [Concomitant]
  3. RIVOTRIL [Concomitant]
  4. UNKNOWN DRUG [Concomitant]
  5. ZYPREXA [Concomitant]

REACTIONS (2)
  - AMNESIA [None]
  - FATIGUE [None]
